FAERS Safety Report 24287893 (Version 1)
Quarter: 2024Q3

REPORT INFORMATION
  Report Type: Spontaneous
  Country: FR (occurrence: FR)
  Receive Date: 20240905
  Receipt Date: 20240905
  Transmission Date: 20241016
  Serious: Yes (Life-Threatening, Other)
  Sender: BRISTOL MYERS SQUIBB
  Company Number: None

PATIENT
  Age: 57 Year
  Sex: Female
  Weight: 74 kg

DRUGS (10)
  1. ABRAXANE [Suspect]
     Active Substance: PACLITAXEL
     Indication: Pancreatic carcinoma metastatic
     Route: 042
     Dates: start: 20231002, end: 20240716
  2. GEMCITABINE [Suspect]
     Active Substance: GEMCITABINE
     Indication: Pancreatic carcinoma metastatic
     Route: 042
     Dates: start: 20231002, end: 20240506
  3. POTASSIUM CHLORIDE [Concomitant]
     Active Substance: POTASSIUM CHLORIDE
     Indication: Product used for unknown indication
  4. FUROSEMIDE [Concomitant]
     Active Substance: FUROSEMIDE
     Indication: Product used for unknown indication
  5. RAMIPRIL [Concomitant]
     Active Substance: RAMIPRIL
     Indication: Product used for unknown indication
  6. NICARDIPINE HYDROCHLORIDE [Concomitant]
     Active Substance: NICARDIPINE HYDROCHLORIDE
     Indication: Product used for unknown indication
  7. PHLOROGLUCINOL\1,3,5-TRIMETHOXYBENZENE [Concomitant]
     Active Substance: PHLOROGLUCINOL\1,3,5-TRIMETHOXYBENZENE
     Indication: Product used for unknown indication
  8. ACETAMINOPHEN [Concomitant]
     Active Substance: ACETAMINOPHEN
     Indication: Product used for unknown indication
  9. CLOPIDOGREL [Concomitant]
     Active Substance: CLOPIDOGREL BISULFATE
     Indication: Product used for unknown indication
  10. PREDNISOLONE [Concomitant]
     Active Substance: PREDNISOLONE
     Indication: Product used for unknown indication

REACTIONS (2)
  - Thrombotic microangiopathy [Recovering/Resolving]
  - Off label use [Unknown]

NARRATIVE: CASE EVENT DATE: 20240624
